FAERS Safety Report 6822671-2 (Version None)
Quarter: 2010Q3

REPORT INFORMATION
  Report Type: 
  Country: None (occurrence: None)
  Receive Date: 20100708
  Receipt Date: 20100630
  Transmission Date: 20110219
  Serious: Yes (Hospitalization)
  Sender: FDA-Public Use
  Company Number: US-ROCHE-700747

PATIENT
  Age: 58 Year
  Sex: Female
  Weight: 77 kg

DRUGS (2)
  1. BEVACIZUMAB [Suspect]
     Indication: CARCINOID TUMOUR OF THE PANCREAS
     Dosage: LAST DOSE OF BEVACIZUMAB ON 16 MARCH 2010, OVER 30-90 MINUTES ON DAYS 1 AND 15
     Route: 042
     Dates: start: 20091222
  2. TEMSIROLIMUS [Suspect]
     Indication: CARCINOID TUMOUR OF THE PANCREAS
     Dosage: TEMSIROLIMUS 25 MG ON DAY 1,8,15 AND 22, LAST DOSE OF DRUG WAS ON 23 MARCH 2010 (CYCLE 4. DAY8).
     Route: 042
     Dates: start: 20091222

REACTIONS (4)
  - CARDIAC FAILURE CONGESTIVE [None]
  - HYPOXIA [None]
  - LEFT VENTRICULAR DYSFUNCTION [None]
  - PNEUMONITIS [None]
